FAERS Safety Report 8572075-X (Version None)
Quarter: 2012Q3

REPORT INFORMATION
  Report Type: 
  Country: None (occurrence: None)
  Receive Date: 20120806
  Receipt Date: 20120725
  Transmission Date: 20120928
  Serious: Yes (Hospitalization)
  Sender: FDA-Public Use
  Company Number: PHEH2012US001427

PATIENT
  Sex: Female
  Weight: 67.12 kg

DRUGS (1)
  1. GILENYA [Suspect]
     Indication: MULTIPLE SCLEROSIS
     Dosage: 0.5 MG, QD
     Route: 048
     Dates: start: 20110801, end: 20120101

REACTIONS (14)
  - DIPLOPIA [None]
  - FEELING HOT [None]
  - MIGRAINE [None]
  - MUSCULOSKELETAL STIFFNESS [None]
  - ABASIA [None]
  - DIZZINESS [None]
  - GAIT DISTURBANCE [None]
  - MULTIPLE SCLEROSIS RELAPSE [None]
  - GENERAL PHYSICAL HEALTH DETERIORATION [None]
  - ROAD TRAFFIC ACCIDENT [None]
  - FEELING ABNORMAL [None]
  - MUSCULOSKELETAL DISCOMFORT [None]
  - NECK PAIN [None]
  - PAIN [None]
